FAERS Safety Report 23989726 (Version 1)
Quarter: 2024Q2

REPORT INFORMATION
  Report Type: Report from Study
  Country: JM (occurrence: JM)
  Receive Date: 20240619
  Receipt Date: 20240619
  Transmission Date: 20240716
  Serious: Yes (Hospitalization)
  Sender: FDA-Public Use
  Company Number: JM-PFIZER INC-PV202400079487

PATIENT
  Sex: Male

DRUGS (1)
  1. RAPAMUNE [Suspect]
     Active Substance: SIROLIMUS
     Indication: Lymphangioma
     Dosage: 1.2 MG, 2X/DAY
     Dates: start: 20220412

REACTIONS (1)
  - Viral infection [Unknown]
